FAERS Safety Report 17401944 (Version 2)
Quarter: 2020Q2

REPORT INFORMATION
  Report Type: Spontaneous
  Country: BR (occurrence: BR)
  Receive Date: 20200211
  Receipt Date: 20200407
  Transmission Date: 20200713
  Serious: Yes (Other)
  Sender: FDA-Public Use
  Company Number: BR-ALEXION PHARMACEUTICALS INC.-A202001647

PATIENT
  Age: 33 Year
  Sex: Male

DRUGS (3)
  1. WARFARIN [Concomitant]
     Active Substance: WARFARIN
     Indication: PROPHYLAXIS
     Dosage: UNK
     Route: 065
  2. SOLIRIS [Suspect]
     Active Substance: ECULIZUMAB
     Indication: PAROXYSMAL NOCTURNAL HAEMOGLOBINURIA
     Route: 065
  3. ENOXAPARIN [Concomitant]
     Active Substance: ENOXAPARIN
     Indication: PROPHYLAXIS
     Dosage: 1 MG/KG, Q12H
     Route: 065

REACTIONS (14)
  - Hepatosplenomegaly [Recovered/Resolved]
  - Platelet count decreased [Unknown]
  - Paroxysmal nocturnal haemoglobinuria [Recovered/Resolved]
  - Haemolysis [Recovered/Resolved]
  - Mean cell volume increased [Unknown]
  - Fatigue [Recovered/Resolved]
  - Abdominal pain [Recovered/Resolved]
  - Haemoglobinuria [Recovered/Resolved]
  - Budd-Chiari syndrome [Recovered/Resolved]
  - Hepatic vein thrombosis [Recovered/Resolved]
  - Portal vein thrombosis [Recovered/Resolved]
  - Erectile dysfunction [Recovered/Resolved]
  - Varices oesophageal [Recovered/Resolved]
  - Haemoglobin decreased [Unknown]

NARRATIVE: CASE EVENT DATE: 202001
